FAERS Safety Report 6009903-8 (Version None)
Quarter: 2008Q4

REPORT INFORMATION
  Report Type: 
  Country: None (occurrence: None)
  Receive Date: 20081218
  Receipt Date: 20081209
  Transmission Date: 20090506
  Serious: Yes (Hospitalization, Other)
  Sender: FDA-Public Use
  Company Number: US-RANBAXY-2007US-10356

PATIENT

DRUGS (3)
  1. ISOTRETINOIN [Suspect]
     Indication: DRUG USE FOR UNKNOWN INDICATION
     Dosage: 20 MG, TID
     Route: 048
     Dates: start: 20070727, end: 20070923
  2. ISOTRETINOIN [Suspect]
     Dosage: 40 MG, QD
     Route: 048
     Dates: start: 20070727, end: 20070923
  3. CELEXA [Concomitant]
     Indication: BIPOLAR DISORDER
     Dosage: 20 MG, MONTHLY
     Route: 048
     Dates: start: 20070928

REACTIONS (2)
  - ANAEMIA [None]
  - PREGNANCY [None]
